FAERS Safety Report 10354851 (Version 1)
Quarter: 2014Q3

REPORT INFORMATION
  Report Type: Spontaneous
  Country: IT (occurrence: IT)
  Receive Date: 20140731
  Receipt Date: 20140731
  Transmission Date: 20150326
  Serious: Yes (Other)
  Sender: FDA-Public Use
  Company Number: IT-TEVA-497038ISR

PATIENT
  Age: 78 Year
  Sex: Female

DRUGS (6)
  1. FLUORURACILE TEVA [Suspect]
     Active Substance: FLUOROURACIL
     Indication: BREAST CANCER
     Dosage: 815 MILLIGRAM DAILY;
     Route: 042
     Dates: start: 20140327, end: 20140619
  2. ALOXI [Concomitant]
     Active Substance: PALONOSETRON HYDROCHLORIDE
     Indication: PREMEDICATION
     Dosage: 250 MICROGRAM DAILY;
     Route: 042
     Dates: start: 20140327, end: 20140619
  3. ENDOXAN BAXTER [Suspect]
     Active Substance: CYCLOPHOSPHAMIDE
     Indication: BREAST CANCER
     Dosage: 815 MILLIGRAM DAILY;
     Dates: start: 20140327, end: 20140619
  4. EPIRUBICINA AHCL [Suspect]
     Active Substance: EPIRUBICIN
     Indication: BREAST CANCER
     Dosage: 120 MILLIGRAM DAILY;
     Route: 042
     Dates: start: 20140327, end: 20140619
  5. DESAMETASONE FOSFATO HOSPIRA [Concomitant]
     Indication: PREMEDICATION
     Dosage: 8 MILLIGRAM DAILY;
     Route: 042
     Dates: start: 20140327, end: 20140619
  6. RANITIDINA HEXAL [Concomitant]
     Indication: PREMEDICATION
     Dosage: 50 MILLIGRAM DAILY;
     Dates: start: 20140327, end: 20140619

REACTIONS (2)
  - Anaemia [Recovered/Resolved]
  - Febrile neutropenia [Recovered/Resolved]

NARRATIVE: CASE EVENT DATE: 20140628
